FAERS Safety Report 9231759 (Version 1)
Quarter: 2013Q2

REPORT INFORMATION
  Report Type: Spontaneous
  Country: IT (occurrence: IT)
  Receive Date: 20130415
  Receipt Date: 20130415
  Transmission Date: 20140414
  Serious: Yes (Hospitalization)
  Sender: FDA-Public Use
  Company Number: IT-ASTRAZENECA-2013SE22263

PATIENT
  Age: 31018 Day
  Sex: Female

DRUGS (3)
  1. NEXIUM [Suspect]
     Route: 048
     Dates: start: 20130102, end: 20130314
  2. COUMADIN (WARFARIN) [Concomitant]
     Indication: INTERNATIONAL NORMALISED RATIO ABNORMAL
  3. COUMADIN (WARFARIN) [Concomitant]
     Indication: INTERNATIONAL NORMALISED RATIO ABNORMAL
     Dates: start: 20130102

REACTIONS (1)
  - International normalised ratio increased [Recovered/Resolved]
